FAERS Safety Report 9707582 (Version 1)
Quarter: 2013Q4

REPORT INFORMATION
  Report Type: Spontaneous
  Country: US (occurrence: US)
  Receive Date: 20131125
  Receipt Date: 20131125
  Transmission Date: 20140711
  Serious: No
  Sender: FDA-Public Use
  Company Number: US-TEVA-376797USA

PATIENT
  Age: 31 Year
  Sex: Female

DRUGS (2)
  1. PARAGARD 380A [Suspect]
     Indication: CONTRACEPTION
     Route: 015
     Dates: start: 201104, end: 201208
  2. DIFFERIN [Concomitant]
     Indication: ACNE
     Route: 061

REACTIONS (1)
  - Acne [Not Recovered/Not Resolved]
